FAERS Safety Report 5875108-4 (Version None)
Quarter: 2008Q3

REPORT INFORMATION
  Report Type: 
  Country: None (occurrence: None)
  Receive Date: 20080909
  Receipt Date: 20080904
  Transmission Date: 20090109
  Serious: Yes (Death)
  Sender: FDA-Public Use
  Company Number: A0746395A

PATIENT
  Age: 86 Year
  Sex: Male
  Weight: 82 kg

DRUGS (3)
  1. SERETIDE DISKUS [Suspect]
     Indication: DRUG USE FOR UNKNOWN INDICATION
     Route: 055
  2. UNKNOWN MEDICATION [Concomitant]
     Indication: DRUG USE FOR UNKNOWN INDICATION
  3. SPIRIVA [Concomitant]
     Indication: DRUG USE FOR UNKNOWN INDICATION
     Dates: start: 20020101, end: 20070701

REACTIONS (1)
  - EMPHYSEMA [None]
